FAERS Safety Report 5833095-9 (Version None)
Quarter: 2008Q3

REPORT INFORMATION
  Report Type: 
  Country: None (occurrence: None)
  Receive Date: 20080801
  Receipt Date: 20080801
  Transmission Date: 20090109
  Serious: Yes (Hospitalization)
  Sender: FDA-Public Use
  Company Number: None

PATIENT
  Sex: Male
  Weight: 65.9 kg

DRUGS (9)
  1. CISPLATIN [Suspect]
     Dosage: 364 MG
     Dates: end: 20080714
  2. ATIVAN [Concomitant]
  3. CARTIA XT [Concomitant]
  4. COMPAZINE [Concomitant]
  5. HYDROCONDONE/APAP [Concomitant]
  6. LEVOTHYROXINE SODIUM [Concomitant]
  7. LISINOPRIL [Concomitant]
  8. ROXANOL [Concomitant]
  9. TYLENOL [Concomitant]

REACTIONS (7)
  - ASTHENIA [None]
  - DYSPHAGIA [None]
  - HAEMOPTYSIS [None]
  - INCREASED VISCOSITY OF BRONCHIAL SECRETION [None]
  - NAUSEA [None]
  - OROPHARYNGEAL PAIN [None]
  - PAIN [None]
